FAERS Safety Report 8430055-9 (Version None)
Quarter: 2012Q2

REPORT INFORMATION
  Report Type: 
  Country: None (occurrence: None)
  Receive Date: 20120612
  Receipt Date: 20120529
  Transmission Date: 20120825
  Serious: Yes (Other)
  Sender: FDA-Public Use
  Company Number: JP-TEVA-341642ISR

PATIENT
  Age: 59 Year
  Sex: Female

DRUGS (2)
  1. CISPLATIN [Suspect]
     Indication: CERVIX CARCINOMA
     Dosage: 6 MILLIGRAM;
     Route: 041
     Dates: start: 20120515, end: 20120515
  2. DEXAMETHASONE SODIUM PHOSPHATE [Concomitant]

REACTIONS (5)
  - PALPITATIONS [None]
  - ABDOMINAL DISCOMFORT [None]
  - BLOOD PRESSURE INCREASED [None]
  - OXYGEN SATURATION [None]
  - ATRIAL FIBRILLATION [None]
